FAERS Safety Report 4316473-9 (Version None)
Quarter: 2004Q1

REPORT INFORMATION
  Report Type: 
  Country: None (occurrence: None)
  Receive Date: 20040311
  Receipt Date: 20040302
  Transmission Date: 20041129
  Serious: Yes (Hospitalization)
  Sender: FDA-Public Use
  Company Number: APCDSS2003000581

PATIENT
  Age: 25 Year
  Sex: Female

DRUGS (3)
  1. RISPERIDONE [Suspect]
     Dosage: SEE IMAGE
     Dates: start: 20030422, end: 20030422
  2. CAFFEINE ANHYDROUS (CAFFEINE) [Concomitant]
  3. BIGUANIDE (BIGUANIDES) [Concomitant]

REACTIONS (7)
  - BLOOD GLUCOSE INCREASED [None]
  - DEPRESSED LEVEL OF CONSCIOUSNESS [None]
  - DIABETIC KETOACIDOSIS [None]
  - NEUROLEPTIC MALIGNANT SYNDROME [None]
  - OVERDOSE [None]
  - RHABDOMYOLYSIS [None]
  - SUICIDE ATTEMPT [None]
